FAERS Safety Report 5215784-2 (Version None)
Quarter: 2007Q1

REPORT INFORMATION
  Report Type: 
  Country: None (occurrence: None)
  Receive Date: 20070123
  Receipt Date: 20070111
  Transmission Date: 20070707
  Serious: Yes (Hospitalization)
  Sender: FDA-Public Use
  Company Number: 2006CG01944

PATIENT
  Age: 69 Year
  Sex: Male

DRUGS (2)
  1. CRESTOR [Suspect]
     Route: 048
  2. PERINDOPRIL ERBUMINE [Suspect]

REACTIONS (1)
  - DRUG ERUPTION [None]
